FAERS Safety Report 9860533 (Version 2)
Quarter: 2014Q2

REPORT INFORMATION
  Report Type: Spontaneous
  Country: US (occurrence: US)
  Receive Date: 20140202
  Receipt Date: 20140522
  Transmission Date: 20141212
  Serious: No
  Sender: FDA-Public Use
  Company Number: US-009507513-1401USA010226

PATIENT
  Sex: Female
  Weight: 71.2 kg

DRUGS (3)
  1. ZEGERID OTC CAPSULES [Suspect]
     Indication: DUODENITIS
     Dosage: UNK, QOD
     Route: 048
     Dates: start: 200901
  2. ZEGERID OTC CAPSULES [Suspect]
     Dosage: 20 MG, UNK
     Route: 048
     Dates: start: 2010
  3. ENBREL [Concomitant]
     Indication: RHEUMATOID ARTHRITIS
     Dosage: UNK, UNKNOWN

REACTIONS (3)
  - Inappropriate schedule of drug administration [Unknown]
  - Off label use [Unknown]
  - Product quality issue [Unknown]
